FAERS Safety Report 11806620 (Version 2)
Quarter: 2016Q1

REPORT INFORMATION
  Report Type: Spontaneous
  Country: US (occurrence: US)
  Receive Date: 20151207
  Receipt Date: 20160202
  Transmission Date: 20160525
  Serious: No
  Sender: FDA-Public Use
  Company Number: US-PFIZER INC-2015411963

PATIENT
  Age: 71 Year
  Sex: Male
  Weight: 77.11 kg

DRUGS (1)
  1. SUTENT [Suspect]
     Active Substance: SUNITINIB MALATE
     Indication: METASTATIC RENAL CELL CARCINOMA
     Dosage: 37.5 MG, CYCLIC (ONCE DAILY, 4 WEEKS ON/2 WEEKS OFF)
     Route: 048
     Dates: start: 20150718, end: 20151106

REACTIONS (6)
  - Dysgeusia [Unknown]
  - Metastatic renal cell carcinoma [Recovered/Resolved]
  - Disease progression [Recovered/Resolved]
  - Skin fissures [Unknown]
  - Erythema [Unknown]
  - Inflammation [Unknown]

NARRATIVE: CASE EVENT DATE: 2015
